FAERS Safety Report 4398890-4 (Version None)
Quarter: 2004Q2

REPORT INFORMATION
  Report Type: 
  Country: None (occurrence: None)
  Receive Date: 20040621
  Receipt Date: 20040213
  Transmission Date: 20050107
  Serious: Yes (Death)
  Sender: FDA-Public Use
  Company Number: USA-2003-0007098

PATIENT
  Age: 47 Year
  Sex: Male
  Weight: 107.5 kg

DRUGS (8)
  1. OXYCODONE HCL [Suspect]
  2. HYDROCODONE BITARTRATE [Suspect]
  3. MORPHINE SULFATE [Suspect]
  4. DIHYDROCODEINE/ CAFFEINE/ ACETAMINOPHEN (SIMILAR TO ANDA 88-584) (DIHY [Suspect]
  5. DIAZEPAM [Suspect]
  6. TEMAZEPAM [Suspect]
  7. OXAZEPAM [Suspect]
  8. BUPROPION (AMFEBUTAMONE) [Suspect]

REACTIONS (1)
  - MULTIPLE DRUG OVERDOSE ACCIDENTAL [None]
